FAERS Safety Report 20764862 (Version 1)
Quarter: 2022Q2

REPORT INFORMATION
  Report Type: Spontaneous
  Country: US (occurrence: US)
  Receive Date: 20220428
  Receipt Date: 20220428
  Transmission Date: 20220721
  Serious: No
  Sender: FDA-Public Use
  Company Number: US-SA-SAC20220422000680

PATIENT
  Age: 53 Year
  Sex: Female

DRUGS (22)
  1. AUBAGIO [Suspect]
     Active Substance: TERIFLUNOMIDE
     Indication: Seizure
     Dosage: 1 DF, QD
     Route: 048
     Dates: start: 20150324
  2. SERTRALINE [Suspect]
     Active Substance: SERTRALINE HYDROCHLORIDE
  3. DEPAKOTE [Suspect]
     Active Substance: DIVALPROEX SODIUM
     Dosage: UNK
  4. PRAVASTATIN SODIUM [Suspect]
     Active Substance: PRAVASTATIN SODIUM
     Dosage: UNK
  5. BACLOFEN [Suspect]
     Active Substance: BACLOFEN
     Dosage: UNK
  6. PREDNISONE [Suspect]
     Active Substance: PREDNISONE
     Dosage: 40MG
  7. VALPROIC ACID [Suspect]
     Active Substance: VALPROIC ACID
  8. TOPIRAMATE [Suspect]
     Active Substance: TOPIRAMATE
  9. COPAXONE [Suspect]
     Active Substance: GLATIRAMER ACETATE
  10. NUEDEXTA [Suspect]
     Active Substance: DEXTROMETHORPHAN HYDROBROMIDE\QUINIDINE SULFATE
  11. FYCOMPA [Suspect]
     Active Substance: PERAMPANEL
     Dosage: 1MG
  12. ATIVAN [Suspect]
     Active Substance: LORAZEPAM
  13. VIMPAT [Suspect]
     Active Substance: LACOSAMIDE
  14. NEXIUM I.V. [Suspect]
     Active Substance: ESOMEPRAZOLE SODIUM
  15. NASONEX [Suspect]
     Active Substance: MOMETASONE FUROATE
  16. CYCLOBENZAPRINE HYDROCHLORIDE [Suspect]
     Active Substance: CYCLOBENZAPRINE HYDROCHLORIDE
  17. LYRICA [Suspect]
     Active Substance: PREGABALIN
  18. TIZANIDINE HYDROCHLORIDE [Suspect]
     Active Substance: TIZANIDINE HYDROCHLORIDE
  19. MEDROXYPROGESTERONE ACETATE [Suspect]
     Active Substance: MEDROXYPROGESTERONE ACETATE
  20. NITROFURANTOIN MACROCRYSTALS [Suspect]
     Active Substance: NITROFURANTOIN
  21. NITROFURANTOIN MONOHYDRATE [Suspect]
     Active Substance: NITROFURANTOIN MONOHYDRATE
  22. MAGNESIUM [Suspect]
     Active Substance: MAGNESIUM

REACTIONS (4)
  - Fatigue [Unknown]
  - Somnolence [Unknown]
  - Condition aggravated [Unknown]
  - Product use in unapproved indication [Unknown]
